FAERS Safety Report 5798164-0 (Version None)
Quarter: 2008Q3

REPORT INFORMATION
  Report Type: 
  Country: None (occurrence: None)
  Receive Date: 20080702
  Receipt Date: 20080627
  Transmission Date: 20090109
  Serious: Yes (Hospitalization)
  Sender: FDA-Public Use
  Company Number: A0687222A

PATIENT
  Sex: Male
  Weight: 1.2 kg

DRUGS (3)
  1. PAXIL [Suspect]
     Indication: PANIC REACTION
     Dosage: 40MG PER DAY
     Dates: start: 19951001, end: 19970901
  2. VITAMIN TAB [Concomitant]
  3. FOLIC ACID [Concomitant]

REACTIONS (27)
  - ANAEMIA NEONATAL [None]
  - APGAR SCORE LOW [None]
  - APNOEA [None]
  - ASTHMA [None]
  - BRADYCARDIA [None]
  - BRADYCARDIA NEONATAL [None]
  - BRONCHIAL HYPERREACTIVITY [None]
  - BRONCHITIS [None]
  - CAESAREAN SECTION [None]
  - COUGH [None]
  - DRUG EXPOSURE DURING PREGNANCY [None]
  - FOETAL DISTRESS SYNDROME [None]
  - HYPERBILIRUBINAEMIA NEONATAL [None]
  - HYPOTENSION [None]
  - HYPOVOLAEMIA [None]
  - INFANTILE APNOEIC ATTACK [None]
  - INGUINAL HERNIA [None]
  - MATERNAL DRUGS AFFECTING FOETUS [None]
  - NEONATAL HYPOTENSION [None]
  - NEONATAL RESPIRATORY DISTRESS SYNDROME [None]
  - PALLOR [None]
  - PALPITATIONS [None]
  - PREMATURE BABY [None]
  - RESPIRATORY DISTRESS [None]
  - STAPHYLOCOCCAL SEPSIS [None]
  - SUPRAVENTRICULAR EXTRASYSTOLES [None]
  - TALIPES [None]
